FAERS Safety Report 10755225 (Version 1)
Quarter: 2015Q1

REPORT INFORMATION
  Report Type: Spontaneous
  Country: US (occurrence: None)
  Receive Date: 20150130
  Receipt Date: 20150130
  Transmission Date: 20150721
  Serious: No
  Sender: FDA-Public Use
  Company Number: None

PATIENT
  Age: 57 Year
  Sex: Female

DRUGS (6)
  1. VICODIN [Concomitant]
     Active Substance: ACETAMINOPHEN\HYDROCODONE BITARTRATE
  2. VIVELLE-DOT [Concomitant]
     Active Substance: ESTRADIOL
  3. AMBIEN [Concomitant]
     Active Substance: ZOLPIDEM TARTRATE
  4. HARVONI [Suspect]
     Active Substance: LEDIPASVIR\SOFOSBUVIR
     Indication: CHRONIC HEPATITIS C
     Route: 048
     Dates: start: 20141201
  5. CALCIUM [Concomitant]
     Active Substance: CALCIUM
  6. IMITREX [Concomitant]
     Active Substance: SUMATRIPTAN\SUMATRIPTAN SUCCINATE

REACTIONS (8)
  - Decreased appetite [None]
  - Migraine [None]
  - Fatigue [None]
  - Headache [None]
  - Crying [None]
  - Rash papular [None]
  - Rash erythematous [None]
  - Mood altered [None]

NARRATIVE: CASE EVENT DATE: 201412
